FAERS Safety Report 6255111-5 (Version None)
Quarter: 2009Q3

REPORT INFORMATION
  Report Type: 
  Country: None (occurrence: None)
  Receive Date: 20090702
  Receipt Date: 20090629
  Transmission Date: 20100115
  Serious: Yes (Death, Hospitalization)
  Sender: FDA-Public Use
  Company Number: ZA-B.I. PHARMACEUTICALS,INC./RIDGEFIELD-2009-BP-07646BP

PATIENT
  Sex: Male
  Weight: 6.5 kg

DRUGS (5)
  1. VIRAMUNE [Suspect]
     Indication: PROPHYLAXIS AGAINST HIV INFECTION
     Dosage: 0.8 ML
     Route: 048
     Dates: start: 20090116, end: 20090220
  2. BLIND (NEVIRAPINE) [Suspect]
     Indication: PROPHYLAXIS AGAINST HIV INFECTION
     Route: 048
     Dates: start: 20090302, end: 20090612
  3. MULTIVITAMIN SYRUP [Concomitant]
  4. CO-TRAMOXAZOLE [Concomitant]
  5. IRON SUPPLEMENTATION [Concomitant]

REACTIONS (6)
  - BRONCHOPNEUMONIA [None]
  - DIARRHOEA [None]
  - GENERAL PHYSICAL HEALTH DETERIORATION [None]
  - IRRITABILITY [None]
  - METABOLIC ACIDOSIS [None]
  - NORMOCHROMIC NORMOCYTIC ANAEMIA [None]
